FAERS Safety Report 6829960-6 (Version None)
Quarter: 2010Q3

REPORT INFORMATION
  Report Type: 
  Country: None (occurrence: None)
  Receive Date: 20100711
  Receipt Date: 20100405
  Transmission Date: 20110219
  Serious: No
  Sender: FDA-Public Use
  Company Number: US-ALLERGAN-1004517US

PATIENT
  Age: 54 Year
  Sex: Female
  Weight: 125 kg

DRUGS (1)
  1. LATISSE [Suspect]
     Indication: GROWTH OF EYELASHES
     Dosage: UNK
     Dates: start: 20100211

REACTIONS (3)
  - DRY SKIN [None]
  - PRURITUS [None]
  - SKIN WRINKLING [None]
